FAERS Safety Report 8339039-2 (Version None)
Quarter: 2012Q2

REPORT INFORMATION
  Report Type: 
  Country: None (occurrence: None)
  Receive Date: 20120502
  Receipt Date: 20120423
  Transmission Date: 20120825
  Serious: Yes (Death)
  Sender: FDA-Public Use
  Company Number: ADR-2012-00796

PATIENT
  Age: 50 Year
  Sex: Female

DRUGS (3)
  1. LIORESAL [Suspect]
     Dosage: 795.5 MCG/DAY
  2. CLONIDINE [Concomitant]
  3. HYDROMORPHINE [Concomitant]

REACTIONS (1)
  - NEOPLASM MALIGNANT [None]
